FAERS Safety Report 5483726-0 (Version None)
Quarter: 2007Q4

REPORT INFORMATION
  Report Type: 
  Country: None (occurrence: None)
  Receive Date: 20071012
  Receipt Date: 20071012
  Transmission Date: 20080405
  Serious: Yes (Other)
  Sender: FDA-Public Use
  Company Number: A0687432A

PATIENT
  Age: 45 Year
  Sex: Female

DRUGS (3)
  1. CITRUCEL [Suspect]
     Indication: CONSTIPATION
     Dosage: 2TAB SINGLE DOSE
     Route: 048
     Dates: start: 20071002, end: 20071010
  2. ASCORBIC ACID [Concomitant]
  3. PLANT ENZYMES [Concomitant]

REACTIONS (2)
  - METRORRHAGIA [None]
  - VAGINAL HAEMORRHAGE [None]
